FAERS Safety Report 6419297-1 (Version None)
Quarter: 2009Q4

REPORT INFORMATION
  Report Type: 
  Country: None (occurrence: None)
  Receive Date: 20091029
  Receipt Date: 20091026
  Transmission Date: 20100525
  Serious: Yes (Hospitalization)
  Sender: FDA-Public Use
  Company Number: DZ-BRISTOL-MYERS SQUIBB COMPANY-14832240

PATIENT
  Age: 23 Year
  Sex: Male

DRUGS (1)
  1. BARACLUDE [Suspect]
     Dosage: STRENGTH - 0.5 MG

REACTIONS (2)
  - ARTHRALGIA [None]
  - INFECTION [None]
